FAERS Safety Report 21979168 (Version 4)
Quarter: 2023Q2

REPORT INFORMATION
  Report Type: Spontaneous
  Country: KZ (occurrence: KZ)
  Receive Date: 20230210
  Receipt Date: 20230420
  Transmission Date: 20230721
  Serious: Yes (Hospitalization, Other)
  Sender: FDA-Public Use
  Company Number: KZ-SA-SAC20230125000822

PATIENT
  Age: 28 Year
  Sex: Female
  Weight: 53 kg

DRUGS (6)
  1. MYOZYME [Suspect]
     Active Substance: ALGLUCOSIDASE ALFA
     Indication: Glycogen storage disease type II
     Dosage: UNK
     Route: 065
  2. MYOZYME [Suspect]
     Active Substance: ALGLUCOSIDASE ALFA
     Dosage: 20 MG/KG, QOW
     Route: 065
     Dates: start: 2018
  3. DIETARY SUPPLEMENT [Concomitant]
     Active Substance: DIETARY SUPPLEMENT
     Dosage: 500 MG
     Route: 048
  4. ELEVIT [MINERALS NOS;VITAMINS NOS] [Concomitant]
     Dosage: UNK
     Route: 048
  5. FISH OIL [Concomitant]
     Active Substance: FISH OIL
     Dosage: UNK
     Route: 048
  6. METHYL FOLATE [CALCIUM LEVOMEFOLATE] [Concomitant]
     Dosage: 400 UG
     Route: 048

REACTIONS (19)
  - Haemorrhage in pregnancy [Recovered/Resolved]
  - Red blood cell count increased [Unknown]
  - Mean cell haemoglobin concentration decreased [Unknown]
  - Mean platelet volume increased [Unknown]
  - Monocyte percentage increased [Unknown]
  - Vitamin D deficiency [Unknown]
  - Urine abnormality [Unknown]
  - Laboratory test abnormal [Unknown]
  - Nitrite urine present [Unknown]
  - Bacterial test positive [Unknown]
  - Weight increased [Unknown]
  - Alanine aminotransferase increased [Not Recovered/Not Resolved]
  - Aspartate aminotransferase increased [Not Recovered/Not Resolved]
  - Red blood cell sedimentation rate [Unknown]
  - White blood cell count increased [Not Recovered/Not Resolved]
  - Blood creatine phosphokinase increased [Not Recovered/Not Resolved]
  - Blood lactate dehydrogenase increased [Not Recovered/Not Resolved]
  - Fatigue [Unknown]
  - Maternal exposure during pregnancy [Unknown]

NARRATIVE: CASE EVENT DATE: 20221001
